FAERS Safety Report 21556545 (Version 1)
Quarter: 2022Q4

REPORT INFORMATION
  Report Type: Spontaneous
  Country: US (occurrence: US)
  Receive Date: 20221104
  Receipt Date: 20221104
  Transmission Date: 20230112
  Serious: Yes (Hospitalization)
  Sender: FDA-Public Use
  Company Number: US-HORMOSAN PHARMA GMBH-2022-12886

PATIENT
  Age: 53 Year
  Sex: Female

DRUGS (3)
  1. TADALAFIL [Suspect]
     Active Substance: TADALAFIL
     Indication: Pulmonary arterial hypertension
     Dosage: 20 MG, BID
     Route: 048
  2. TREPROSTINIL [Suspect]
     Active Substance: TREPROSTINIL
     Indication: Pulmonary arterial hypertension
     Dosage: 147 NANOGRAM PER KILOGRAM PER MINUTE
     Route: 042
  3. TREPROSTINIL [Suspect]
     Active Substance: TREPROSTINIL
     Dosage: 141 NANOGRAM PER KILOGRAM PER MINUTE
     Route: 042

REACTIONS (2)
  - Hypotension [Recovered/Resolved]
  - Off label use [Unknown]
